FAERS Safety Report 23092549 (Version 1)
Quarter: 2023Q4

REPORT INFORMATION
  Report Type: Spontaneous
  Country: US (occurrence: US)
  Receive Date: 20231021
  Receipt Date: 20231021
  Transmission Date: 20240110
  Serious: No
  Sender: FDA-Public Use
  Company Number: US-drreddys-SPO/USA/23/0179021

PATIENT
  Age: 15 Year
  Sex: Female

DRUGS (2)
  1. ACCUTANE [Suspect]
     Active Substance: ISOTRETINOIN
     Indication: Product used for unknown indication
     Dosage: RMA ISSUE DATE: 18 MAY 2023 11:39:22 AM, 23 JUNE 2023 05:30:05 PM, 01 AUGUST 2023 09:05:20 AM, 01 SE
  2. ACCUTANE [Suspect]
     Active Substance: ISOTRETINOIN
     Dosage: RMA ISSUE DATE: 23 JUNE 2023 05:30:05 PM, 01 AUGUST 2023 09:07:03 AM, 01 SEPTEMBER 2023 11:01:29 AM

REACTIONS (1)
  - Adverse drug reaction [Unknown]
